FAERS Safety Report 4830696-1 (Version None)
Quarter: 2005Q4

REPORT INFORMATION
  Report Type: 
  Country: None (occurrence: None)
  Receive Date: 20051114
  Receipt Date: 20051028
  Transmission Date: 20060501
  Serious: Yes (Hospitalization, Other)
  Sender: FDA-Public Use
  Company Number: GBWYE096828OCT05

PATIENT
  Age: 56 Year
  Sex: Female

DRUGS (1)
  1. PREMIQUE (CONJUGATED ESTROGENS/MEDROXYPROGESTERONE ACETATE, TABLET) [Suspect]
     Indication: MENOPAUSAL SYMPTOMS
     Dosage: 5 MG 1X PER 1 DAY
     Dates: start: 20050910, end: 20050912

REACTIONS (5)
  - BALANCE DISORDER [None]
  - DIZZINESS [None]
  - NASOPHARYNGITIS [None]
  - POLLAKIURIA [None]
  - SYNCOPE [None]
